FAERS Safety Report 7187684-2 (Version None)
Quarter: 2010Q4

REPORT INFORMATION
  Report Type: 
  Country: None (occurrence: None)
  Receive Date: 20101222
  Receipt Date: 20100703
  Transmission Date: 20110411
  Serious: No
  Sender: FDA-Public Use
  Company Number: US-AMGEN-KDL422535

PATIENT

DRUGS (4)
  1. ENBREL [Suspect]
     Indication: RHEUMATOID ARTHRITIS
     Dosage: 25 MG, Q2WK
     Route: 058
  2. ADALIMUMAB [Suspect]
     Dosage: UNK UNK, UNK
  3. REMICADE [Suspect]
  4. METHOTREXATE [Concomitant]
     Dosage: 20 MG, QWK
     Route: 048

REACTIONS (4)
  - INJECTION SITE PAIN [None]
  - RASH [None]
  - RHEUMATOID ARTHRITIS [None]
  - WHITE BLOOD CELL COUNT DECREASED [None]
